FAERS Safety Report 14509340 (Version 1)
Quarter: 2018Q1

REPORT INFORMATION
  Report Type: Spontaneous
  Country: NO (occurrence: NO)
  Receive Date: 20180209
  Receipt Date: 20180209
  Transmission Date: 20180509
  Serious: Yes (Death, Hospitalization)
  Sender: FDA-Public Use
  Company Number: NO-ROCHE-2070039

PATIENT
  Age: 72 Year
  Sex: Female

DRUGS (1)
  1. ACTILYSE [Suspect]
     Active Substance: ALTEPLASE
     Indication: ISCHAEMIC STROKE
     Dosage: 8.5 MG AS BOLUS FOLLOWED BY 77.5 MG
     Route: 042
     Dates: start: 20171227, end: 20171227

REACTIONS (2)
  - Haemorrhage intracranial [Fatal]
  - Respiratory arrest [Fatal]
